FAERS Safety Report 21835523 (Version 5)
Quarter: 2023Q4

REPORT INFORMATION
  Report Type: Other
  Country: DE (occurrence: None)
  Receive Date: 20230109
  Receipt Date: 20231115
  Transmission Date: 20240110
  Serious: Yes (Hospitalization)
  Sender: FDA-Public Use
  Company Number: DE-ROCHE-3256143

PATIENT
  Age: 0 Year
  Sex: Female
  Weight: 3.27 kg

DRUGS (26)
  1. OCRELIZUMAB [Suspect]
     Active Substance: OCRELIZUMAB
     Indication: Product used for unknown indication
     Dosage: SUBSEQUENT DOSE RECEIVED ON 25/NOV/2022.
     Route: 064
     Dates: start: 20211203, end: 20211203
  2. COMIRNATY (TOZINAMERAN) [Concomitant]
     Active Substance: TOZINAMERAN
     Indication: Prophylaxis
     Dates: start: 20220113, end: 20220113
  3. PREGABALIN [Concomitant]
     Active Substance: PREGABALIN
     Dates: start: 2019, end: 20220214
  4. PREGABALIN [Concomitant]
     Active Substance: PREGABALIN
     Dates: start: 20220215
  5. FOLIC ACID [Concomitant]
     Active Substance: FOLIC ACID
     Indication: Prophylaxis
     Dates: start: 202105, end: 20220504
  6. FOLIC ACID [Concomitant]
     Active Substance: FOLIC ACID
     Dates: start: 20220505
  7. AGNUS CASTUS [Concomitant]
     Indication: Prophylaxis
     Dates: start: 202105, end: 20220522
  8. PANTOPRAZOLE SODIUM [Concomitant]
     Active Substance: PANTOPRAZOLE SODIUM
     Indication: Prophylaxis
     Dates: start: 20220420, end: 20220427
  9. FEMIBION [Concomitant]
     Indication: Prophylaxis
     Dates: start: 20220505
  10. CORTISONE ACETATE [Concomitant]
     Active Substance: CORTISONE ACETATE
     Dates: start: 20220809, end: 20220810
  11. PROGESTERONE [Concomitant]
     Active Substance: PROGESTERONE
     Indication: Prophylaxis
     Dates: start: 20220219, end: 20220525
  12. POLIOMYELITIS VACCINE [Concomitant]
     Active Substance: POLIOMYELITIS VACCINE
     Dates: start: 20230302
  13. POLIOMYELITIS VACCINE [Concomitant]
     Active Substance: POLIOMYELITIS VACCINE
     Dates: start: 20230411
  14. PNEUMOCOCCAL VACCINE POLYVALENT NOS [Concomitant]
     Active Substance: PNEUMOCOCCAL VACCINE POLYVALENT
     Dates: start: 20230302
  15. PNEUMOCOCCAL VACCINE POLYVALENT NOS [Concomitant]
     Active Substance: PNEUMOCOCCAL VACCINE POLYVALENT
     Dates: start: 20230411
  16. HEPATITIS B VIRUS VACCINE [Concomitant]
     Active Substance: HEPATITIS B VIRUS VACCINE
     Dates: start: 20230302
  17. HEPATITIS B VIRUS VACCINE [Concomitant]
     Active Substance: HEPATITIS B VIRUS VACCINE
     Dates: start: 20230411
  18. DIPHTHERIA AND TETANUS TOXOIDS AND ACELLULAR PERTUSSIS VACCINE ADSORBE [Concomitant]
     Active Substance: DIPHTHERIA AND TETANUS TOXOIDS AND ACELLULAR PERTUSSIS VACCINE ADSORBED
     Dates: start: 20230411
  19. DIPHTHERIA AND TETANUS TOXOIDS AND ACELLULAR PERTUSSIS VACCINE ADSORBE [Concomitant]
     Active Substance: DIPHTHERIA AND TETANUS TOXOIDS AND ACELLULAR PERTUSSIS VACCINE ADSORBED
     Dates: start: 20230302
  20. HAEMOPHILUS INFLUENZAE TYPE B [Concomitant]
     Active Substance: HAEMOPHILUS INFLUENZAE TYPE B
     Dates: start: 20230302
  21. MENINGOCOCCAL POLYSACCHARIDE VACCINE A NOS [Concomitant]
     Active Substance: MENINGOCOCCAL POLYSACCHARIDE VACCINE A\NEISSERIA MENINGITIDIS GROUP A CAPSULAR POLYSACCHARIDE ANTIGE
     Dates: start: 20230509
  22. HUMAN ROTAVIRUS A [Concomitant]
     Active Substance: HUMAN ROTAVIRUS A
     Dates: start: 20230117
  23. MEASLES, MUMPS AND RUBELLA [Concomitant]
     Dates: start: 20230907
  24. HAEMOPHILUS INFLUENZAE TYPE B [Concomitant]
     Active Substance: HAEMOPHILUS INFLUENZAE TYPE B
     Dates: start: 20231018
  25. HEPATITIS B VIRUS VACCINE [Concomitant]
     Active Substance: HEPATITIS B VIRUS VACCINE
     Dates: start: 20231018
  26. DIPHTHERIA AND TETANUS TOXOIDS AND ACELLULAR PERTUSSIS VACCINE ADSORBE [Concomitant]
     Active Substance: DIPHTHERIA AND TETANUS TOXOIDS AND ACELLULAR PERTUSSIS VACCINE ADSORBED
     Dates: start: 20231018

REACTIONS (3)
  - Respiratory syncytial virus infection [Recovered/Resolved]
  - Premature baby [Unknown]
  - Foetal exposure during pregnancy [Unknown]

NARRATIVE: CASE EVENT DATE: 20221001
